FAERS Safety Report 17907682 (Version 3)
Quarter: 2020Q3

REPORT INFORMATION
  Report Type: Report from Study
  Country: BE (occurrence: BE)
  Receive Date: 20200617
  Receipt Date: 20200819
  Transmission Date: 20201103
  Serious: Yes (Hospitalization, Other)
  Sender: FDA-Public Use
  Company Number: BE-BRISTOL-MYERS SQUIBB COMPANY-BMS-2019-116601

PATIENT
  Age: 74 Year
  Sex: Male
  Weight: 90.5 kg

DRUGS (29)
  1. DAFALGAN [Concomitant]
     Active Substance: ACETAMINOPHEN
     Indication: PRODUCT USED FOR UNKNOWN INDICATION
     Dosage: 1 GRAM, QID
     Route: 048
     Dates: start: 20200415, end: 20200609
  2. MEDROL [Concomitant]
     Active Substance: METHYLPREDNISOLONE
     Indication: PRODUCT USED FOR UNKNOWN INDICATION
     Dosage: 32 MILLIGRAM, BID
     Route: 048
     Dates: start: 20200429, end: 20200430
  3. PARACETAMOL [Concomitant]
     Active Substance: ACETAMINOPHEN
     Indication: PRODUCT USED FOR UNKNOWN INDICATION
     Dosage: 1 GRAM, QID
     Route: 048
     Dates: start: 20200729, end: 20200805
  4. NIVOLUMAB [Suspect]
     Active Substance: NIVOLUMAB
     Indication: LUNG NEOPLASM MALIGNANT
     Dosage: 240 (UNSPECIFIED UNITS) Q2WK
     Route: 065
     Dates: start: 20190703, end: 20191127
  5. NIVOLUMAB [Suspect]
     Active Substance: NIVOLUMAB
     Dosage: 240 (UNSPECIFIED UNITS),Q2WK
     Route: 065
     Dates: start: 20200205, end: 20200205
  6. NIVOLUMAB [Suspect]
     Active Substance: NIVOLUMAB
     Dosage: 240 (UNSPECIFIED UNITS),Q2WK
     Route: 048
     Dates: start: 20200612, end: 20200612
  7. NIVOLUMAB [Suspect]
     Active Substance: NIVOLUMAB
     Dosage: 240 (UNSPECIFIED UNITS),Q2WK
     Route: 048
     Dates: start: 20200626, end: 20200626
  8. DESLORATADINE. [Concomitant]
     Active Substance: DESLORATADINE
     Indication: PRODUCT USED FOR UNKNOWN INDICATION
     Dosage: 5 MILLIGRAM, BID
     Route: 048
     Dates: start: 20200429, end: 20200609
  9. ELOCOM [Concomitant]
     Active Substance: MOMETASONE FUROATE
     Indication: PRODUCT USED FOR UNKNOWN INDICATION
     Dosage: 0.1 PERCENT, BID
     Route: 061
     Dates: start: 20200429, end: 20200609
  10. DUOVENT [Concomitant]
     Active Substance: FENOTEROL HYDROBROMIDE
     Indication: PRODUCT USED FOR UNKNOWN INDICATION
     Dosage: 20/50 MICROGRAM FOUR TIMES IN A DAY
     Dates: start: 20200416, end: 20200609
  11. PANTOMED [PANTOPRAZOLE SODIUM SESQUIHYDRATE] [Concomitant]
     Active Substance: PANTOPRAZOLE SODIUM
     Indication: PRODUCT USED FOR UNKNOWN INDICATION
     Dosage: 20 MILLIGRAM, QD
     Route: 048
     Dates: start: 20191023, end: 20191102
  12. BELLOZAL [Concomitant]
     Active Substance: BILASTINE
     Indication: PRODUCT USED FOR UNKNOWN INDICATION
     Dosage: 20 MILLIGRAM, DAILY
     Route: 048
     Dates: start: 20200428, end: 20200429
  13. NEGABAN [Concomitant]
     Active Substance: TEMOCILLIN
     Indication: PRODUCT USED FOR UNKNOWN INDICATION
     Dosage: 2 GRAM, QD
     Route: 042
     Dates: start: 20200729, end: 20200805
  14. AMUKIN [Concomitant]
     Active Substance: AMIKACIN SULFATE
     Indication: PRODUCT USED FOR UNKNOWN INDICATION
     Dosage: 1 GRAM, QD
     Route: 042
     Dates: start: 20200801, end: 20200802
  15. BACTRIM [Concomitant]
     Active Substance: SULFAMETHOXAZOLE\TRIMETHOPRIM
     Indication: PRODUCT USED FOR UNKNOWN INDICATION
     Dosage: 160 MILLIGRAM, BID
     Route: 048
     Dates: start: 20200730
  16. NIVOLUMAB [Suspect]
     Active Substance: NIVOLUMAB
     Dosage: 240 (UNSPECIFIED UNITS),Q2WK
     Route: 065
     Dates: start: 20191211, end: 20191211
  17. NIVOLUMAB [Suspect]
     Active Substance: NIVOLUMAB
     Dosage: 240 (UNSPECIFIED UNITS),Q2WK
     Route: 048
     Dates: start: 20200304, end: 20200304
  18. ANORO [Concomitant]
     Active Substance: UMECLIDINIUM BROMIDE\VILANTEROL TRIFENATATE
     Indication: CHRONIC OBSTRUCTIVE PULMONARY DISEASE
     Dosage: 1 INHALATION, QD, ORAL INHALTION
     Route: 048
     Dates: start: 20190628
  19. PLAQUENIL [Concomitant]
     Active Substance: HYDROXYCHLOROQUINE SULFATE
     Indication: PRODUCT USED FOR UNKNOWN INDICATION
     Dosage: 200 MILLIGRAM, BID
     Dates: start: 20200416, end: 20200420
  20. TAMSULOSINE [TAMSULOSIN] [Concomitant]
     Active Substance: TAMSULOSIN
     Indication: PRODUCT USED FOR UNKNOWN INDICATION
     Dosage: 0.4 MILLIGRAM, QD
     Route: 048
     Dates: start: 20200730
  21. NIVOLUMAB [Suspect]
     Active Substance: NIVOLUMAB
     Dosage: 240 (UNSPECIFIED UNITS),Q2WK
     Route: 065
     Dates: start: 20200122, end: 20200122
  22. AMLOR [Concomitant]
     Active Substance: AMLODIPINE BESYLATE
     Indication: HYPERTENSION
     Dosage: 10 MILLIGRAM, QD
     Route: 048
     Dates: end: 20200609
  23. CHAMPIX [Concomitant]
     Active Substance: VARENICLINE TARTRATE
     Indication: EX-TOBACCO USER
     Dosage: UNK, QD
     Route: 048
     Dates: start: 20190728, end: 20191019
  24. AZITHROMYCINE [Concomitant]
     Active Substance: AZITHROMYCIN
     Indication: PRODUCT USED FOR UNKNOWN INDICATION
     Dosage: 500 MILLIGRAM, QD
     Route: 048
     Dates: start: 20200415, end: 20200416
  25. NIVOLUMAB [Suspect]
     Active Substance: NIVOLUMAB
     Dosage: 240 (UNSPECIFIED UNITS),Q2WK
     Route: 048
     Dates: start: 20200401, end: 20200401
  26. NIVOLUMAB [Suspect]
     Active Substance: NIVOLUMAB
     Dosage: 240 (UNSPECIFIED UNITS),Q2WK
     Route: 065
     Dates: start: 20200103, end: 20200103
  27. NIVOLUMAB [Suspect]
     Active Substance: NIVOLUMAB
     Dosage: 240 (UNSPECIFIED UNITS),Q2WK
     Route: 065
     Dates: start: 20200219, end: 20200219
  28. NIVOLUMAB [Suspect]
     Active Substance: NIVOLUMAB
     Dosage: 240 (UNSPECIFIED UNITS),Q2WK
     Route: 048
     Dates: start: 20200710, end: 20200710
  29. NIVOLUMAB [Suspect]
     Active Substance: NIVOLUMAB
     Dosage: 240 (UNSPECIFIED UNITS),Q2WK
     Route: 048
     Dates: start: 20200723, end: 20200723

REACTIONS (1)
  - Hypophysitis [Recovered/Resolved]

NARRATIVE: CASE EVENT DATE: 20191102
